FAERS Safety Report 6981069-7 (Version None)
Quarter: 2010Q3

REPORT INFORMATION
  Report Type: 
  Country: None (occurrence: None)
  Receive Date: 20100827
  Receipt Date: 20100614
  Transmission Date: 20110219
  Serious: Yes (Hospitalization)
  Sender: FDA-Public Use
  Company Number: 013810

PATIENT
  Age: 24 Month
  Sex: Male

DRUGS (1)
  1. XYZAL [Suspect]
     Indication: RASH
     Dosage: ()
     Dates: start: 20100613

REACTIONS (1)
  - RASH [None]
